FAERS Safety Report 18770075 (Version 1)
Quarter: 2021Q1

REPORT INFORMATION
  Report Type: Spontaneous
  Country: US (occurrence: US)
  Receive Date: 20210121
  Receipt Date: 20210121
  Transmission Date: 20210419
  Serious: Yes (Other)
  Sender: FDA-Public Use
  Company Number: US-PRINSTON PHARMACEUTICAL INC.-2020PRN00447

PATIENT
  Sex: Male
  Weight: 74.83 kg

DRUGS (1)
  1. CLONAZEPAM. [Suspect]
     Active Substance: CLONAZEPAM
     Indication: SLEEP DISORDER
     Dosage: 0.75 MG, 1X/DAY AT BEDTIME
     Route: 048
     Dates: start: 20200928, end: 202010

REACTIONS (8)
  - Product substitution issue [Recovered/Resolved]
  - Disorganised speech [Recovering/Resolving]
  - Hypoaesthesia oral [Recovered/Resolved]
  - Dysarthria [Recovering/Resolving]
  - Transient ischaemic attack [Unknown]
  - Paraesthesia oral [Recovered/Resolved]
  - Product quality issue [Recovered/Resolved]
  - Dry mouth [Recovered/Resolved]

NARRATIVE: CASE EVENT DATE: 202009
